FAERS Safety Report 16868384 (Version 8)
Quarter: 2020Q4

REPORT INFORMATION
  Report Type: Spontaneous
  Country: US (occurrence: US)
  Receive Date: 20190930
  Receipt Date: 20201106
  Transmission Date: 20210113
  Serious: No
  Sender: FDA-Public Use
  Company Number: US-PFIZER INC-2019415692

PATIENT
  Age: 67 Year
  Sex: Female

DRUGS (2)
  1. IBRANCE [Suspect]
     Active Substance: PALBOCICLIB
     Indication: BREAST CANCER FEMALE
     Dosage: 125 MG, CYCLIC
     Route: 048
     Dates: start: 20190920
  2. IBRANCE [Suspect]
     Active Substance: PALBOCICLIB
     Dosage: 100 MG, CYCLIC (1 TABLET BY MOUTH DAILY FOR 21 CONSECUTIVE DAYS WITH OR WITHOUT FOOD THEN STOP FOR 7
     Route: 048
     Dates: start: 201909

REACTIONS (11)
  - Blood glucose decreased [Unknown]
  - Product dose omission issue [Unknown]
  - Stomatitis [Unknown]
  - Dizziness [Unknown]
  - Blood count abnormal [Unknown]
  - Anal pruritus [Unknown]
  - Paraesthesia [Unknown]
  - Fatigue [Unknown]
  - Constipation [Unknown]
  - Alopecia [Unknown]
  - Diarrhoea [Recovering/Resolving]

NARRATIVE: CASE EVENT DATE: 2019
